FAERS Safety Report 8859188 (Version 1)
Quarter: 2012Q4

REPORT INFORMATION
  Report Type: Spontaneous
  Country: IT (occurrence: None)
  Receive Date: 20121023
  Receipt Date: 20121023
  Transmission Date: 20130627
  Serious: Yes (Hospitalization)
  Sender: FDA-Public Use
  Company Number: 2012AP003352

PATIENT
  Age: 66 Year
  Sex: Male

DRUGS (1)
  1. LEVOFLOXACIN (LEVOFLOXACIN) [Suspect]
     Indication: ACUTE BRONCHITIS
     Route: 048
     Dates: start: 20120928, end: 20120930

REACTIONS (4)
  - Urticaria [None]
  - Bronchitis [None]
  - Eosinophilia [None]
  - Blood immunoglobulin E increased [None]
